FAERS Safety Report 6357575-5 (Version None)
Quarter: 2009Q3

REPORT INFORMATION
  Report Type: 
  Country: None (occurrence: None)
  Receive Date: 20090916
  Receipt Date: 20090907
  Transmission Date: 20100115
  Serious: Yes (Other)
  Sender: FDA-Public Use
  Company Number: PHHY2009IT38472

PATIENT
  Sex: Female

DRUGS (3)
  1. ZOMETA [Suspect]
     Indication: MULTIPLE MYELOMA
     Dosage: 4 MG, QMO
     Route: 042
  2. ALENDRONATE SODIUM [Suspect]
     Indication: MULTIPLE MYELOMA
     Dosage: 70 MG WEEKLY
     Route: 048
     Dates: start: 20070201, end: 20090228
  3. CYCLOPHOSPHAMIDE [Concomitant]
     Dosage: UNK
     Dates: start: 20090501, end: 20090817

REACTIONS (1)
  - OSTEOMYELITIS [None]
